FAERS Safety Report 9350568 (Version 1)
Quarter: 2013Q2

REPORT INFORMATION
  Report Type: Spontaneous
  Country: CN (occurrence: CN)
  Receive Date: 20130617
  Receipt Date: 20130617
  Transmission Date: 20140414
  Serious: Yes (Other)
  Sender: FDA-Public Use
  Company Number: CN-JNJFOC-20130605583

PATIENT
  Age: 24 Year
  Sex: Male

DRUGS (2)
  1. TYLENOL COLD [Suspect]
     Indication: HEADACHE
     Route: 048
     Dates: start: 20120609, end: 20120609
  2. TYLENOL COLD [Suspect]
     Indication: PYREXIA
     Route: 048
     Dates: start: 20120609, end: 20120609

REACTIONS (2)
  - Anaphylactoid reaction [Recovered/Resolved]
  - Dizziness [Recovered/Resolved]
